FAERS Safety Report 5487505-X (Version None)
Quarter: 2007Q4

REPORT INFORMATION
  Report Type: 
  Country: None (occurrence: None)
  Receive Date: 20071016
  Receipt Date: 20071004
  Transmission Date: 20080405
  Serious: Yes (Other)
  Sender: FDA-Public Use
  Company Number: US-PFIZER INC-2007083710

PATIENT
  Sex: Female
  Weight: 104.3 kg

DRUGS (5)
  1. SOLU-MEDROL [Suspect]
     Indication: MULTIPLE SCLEROSIS
  2. PREDNISONE [Suspect]
     Indication: MULTIPLE SCLEROSIS
  3. REBIF [Suspect]
     Indication: MULTIPLE SCLEROSIS
     Dosage: DAILY DOSE:44MCG
     Route: 058
  4. CYTOMEL [Concomitant]
  5. LEVOTHYROX [Concomitant]

REACTIONS (2)
  - DIABETES MELLITUS [None]
  - HEADACHE [None]
